FAERS Safety Report 4640974-7 (Version None)
Quarter: 2005Q2

REPORT INFORMATION
  Report Type: 
  Country: None (occurrence: None)
  Receive Date: 20050421
  Receipt Date: 20050221
  Transmission Date: 20051028
  Serious: Yes (Death)
  Sender: FDA-Public Use
  Company Number: GB-BOEHRINGER INGELHEIM PHARMACEUTICALS, INC.-2005-UK-00282UK

PATIENT
  Sex: Male

DRUGS (14)
  1. TIOTROPIUM (00015/0190/A) [Suspect]
  2. HUMULIN [Suspect]
     Dosage: 100.0 IU/ML
     Route: 065
  3. HUMALOG [Suspect]
     Dosage: 100.0 IU/ML
     Route: 065
  4. SALBUTAMOL [Suspect]
     Route: 055
  5. BUMETANIDE [Suspect]
     Route: 065
  6. TRAMADOL HCL [Suspect]
     Route: 065
  7. SERETIDE [Suspect]
     Route: 055
  8. MONTELUKAST [Suspect]
     Route: 065
  9. NYSTATIN [Suspect]
     Route: 065
  10. LISINOPRIL [Suspect]
     Route: 065
  11. FOSAMAX [Suspect]
     Dosage: 70 MG ONCE WEEKLY
     Route: 065
  12. HUMULIN M3 [Suspect]
     Dosage: 100.0 IU/ML
     Route: 065
  13. PARACETAMOL [Suspect]
     Route: 065
  14. ONE TOUCH ULTRA BIOSENSOR STRIPS [Suspect]

REACTIONS (1)
  - LOBAR PNEUMONIA [None]
